FAERS Safety Report 8984622 (Version 2)
Quarter: 2013Q1

REPORT INFORMATION
  Report Type: Spontaneous
  Country: JP (occurrence: None)
  Receive Date: 20121214
  Receipt Date: 20121231
  Transmission Date: 20140127
  Serious: Yes (Hospitalization)
  Sender: FDA-Public Use
  Company Number: DKLU1086117

PATIENT
  Age: 10 Year
  Sex: Male

DRUGS (3)
  1. ONFI [Suspect]
     Indication: EPILEPSY
     Route: 048
     Dates: end: 20121026
  2. EXCEGRAN [Suspect]
     Indication: EPILEPSY
     Route: 048
     Dates: end: 20121026
  3. AZITHROMYCIN (AZITHROMYCIN) [Concomitant]

REACTIONS (6)
  - Erythema multiforme [None]
  - Anaphylactic reaction [None]
  - Mycoplasma infection [None]
  - Herpes virus infection [None]
  - Hepatitis B [None]
  - Anaphylactic reaction [None]
